FAERS Safety Report 24359167 (Version 1)
Quarter: 2024Q3

REPORT INFORMATION
  Report Type: Report from Study
  Country: US (occurrence: US)
  Receive Date: 20240924
  Receipt Date: 20240924
  Transmission Date: 20241017
  Serious: No
  Sender: Unknown Manufacturer
  Company Number: US-ROCHE-3215496

PATIENT
  Age: 62 Year
  Sex: Female

DRUGS (1)
  1. PRALSETINIB [Suspect]
     Active Substance: PRALSETINIB
     Indication: Lung neoplasm malignant
     Dosage: TAKE 4 CAPSULES BY MOUTH EVERY DAY ON AN EMPTY STOMACH, NO FOOD INTAKE FOR 2 HOURS BEFORE AND AFTERT

REACTIONS (1)
  - Amnesia [Unknown]
